FAERS Safety Report 18646092 (Version 4)
Quarter: 2021Q1

REPORT INFORMATION
  Report Type: Report from Study
  Country: CA (occurrence: CA)
  Receive Date: 20201222
  Receipt Date: 20210308
  Transmission Date: 20210419
  Serious: Yes (Death, Hospitalization, Other)
  Sender: FDA-Public Use
  Company Number: CA-JNJFOC-20201236612

PATIENT
  Age: 89 Year
  Sex: Female
  Weight: 57.3 kg

DRUGS (1)
  1. REMICADE [Suspect]
     Active Substance: INFLIXIMAB
     Indication: COLITIS ULCERATIVE
     Route: 042
     Dates: start: 20140305

REACTIONS (5)
  - Colon cancer [Fatal]
  - General physical health deterioration [Not Recovered/Not Resolved]
  - Peripheral ischaemia [Fatal]
  - COVID-19 [Recovered/Resolved]
  - Dementia [Recovered/Resolved]
